FAERS Safety Report 9384185 (Version 1)
Quarter: 2013Q3

REPORT INFORMATION
  Report Type: Spontaneous
  Country: US (occurrence: US)
  Receive Date: 20130705
  Receipt Date: 20130705
  Transmission Date: 20140515
  Serious: No
  Sender: FDA-Public Use
  Company Number: US-B.I. PHARMACEUTICALS,INC./RIDGEFIELD-2013-BI-18963BP

PATIENT
  Age: 74 Year
  Sex: Female

DRUGS (7)
  1. COMBIVENT [Suspect]
     Indication: CHRONIC OBSTRUCTIVE PULMONARY DISEASE
     Dosage: STRENGTH: 18 MCG / 103 MCG; DAILY DOSE: 18 MCG/ 100MCG
     Route: 055
     Dates: start: 20130610
  2. LISINOPRIL [Concomitant]
     Route: 048
  3. PAROXETINE [Concomitant]
     Route: 048
  4. THEOPHYLLINE [Concomitant]
     Route: 048
  5. ADVAIR [Concomitant]
     Route: 055
  6. CRESTOR [Concomitant]
     Route: 048
  7. TRAZODONE [Concomitant]
     Route: 048

REACTIONS (7)
  - Dyspnoea [Not Recovered/Not Resolved]
  - Decreased appetite [Not Recovered/Not Resolved]
  - Cough [Not Recovered/Not Resolved]
  - Increased upper airway secretion [Not Recovered/Not Resolved]
  - Drug ineffective [Not Recovered/Not Resolved]
  - Dizziness [Not Recovered/Not Resolved]
  - Underdose [Not Recovered/Not Resolved]
